FAERS Safety Report 9438156 (Version 2)
Quarter: 2014Q1

REPORT INFORMATION
  Report Type: Spontaneous
  Country: US (occurrence: US)
  Receive Date: 20130802
  Receipt Date: 20140122
  Transmission Date: 20141002
  Serious: Yes (Other)
  Sender: FDA-Public Use
  Company Number: US-BAYER-2013-093442

PATIENT
  Age: 38 Year
  Sex: Female
  Weight: 79.37 kg

DRUGS (1)
  1. MIRENA [Suspect]
     Dosage: 20 MCG/24HR, CONT
     Route: 015
     Dates: start: 201203, end: 201301

REACTIONS (10)
  - Injury [None]
  - Pain [None]
  - Device dislocation [None]
  - Pregnancy with contraceptive device [None]
  - Drug ineffective [None]
  - Infection [None]
  - Placenta praevia [None]
  - Genital haemorrhage [None]
  - Depression [None]
  - Stress [None]
